FAERS Safety Report 4331279-2 (Version None)
Quarter: 2004Q2

REPORT INFORMATION
  Report Type: 
  Country: None (occurrence: None)
  Receive Date: 20040402
  Receipt Date: 20040323
  Transmission Date: 20050107
  Serious: Yes (Hospitalization)
  Sender: FDA-Public Use
  Company Number: 2004019608

PATIENT
  Age: 71 Year
  Sex: Female

DRUGS (1)
  1. NEOSPORIN (BACTIRCAIN ZINC, NEOMYCIN, POLYMYXIN B SULFATE) [Suspect]
     Indication: WOUND
     Dosage: BID, TOPICAL
     Route: 061
     Dates: start: 19950101, end: 19950101

REACTIONS (3)
  - CONDITION AGGRAVATED [None]
  - RASH [None]
  - SKIN LACERATION [None]
